FAERS Safety Report 7486610-6 (Version None)
Quarter: 2011Q2

REPORT INFORMATION
  Report Type: 
  Country: None (occurrence: None)
  Receive Date: 20110517
  Receipt Date: 20110509
  Transmission Date: 20111010
  Serious: Yes (Hospitalization)
  Sender: FDA-Public Use
  Company Number: PHHO2011US08125

PATIENT
  Sex: Male
  Weight: 74 kg

DRUGS (16)
  1. LASIX [Suspect]
     Indication: OEDEMA
     Dosage: 80 MG, BID
     Dates: start: 20110418
  2. CERTICAN [Suspect]
     Indication: RENAL TRANSPLANT
     Dosage: 3 MG, UNK
     Route: 048
     Dates: start: 20110410
  3. PROGRAF [Suspect]
     Indication: RENAL TRANSPLANT
     Dosage: 10 MG, UNK
     Route: 048
     Dates: start: 20110409
  4. ASPIRIN [Suspect]
     Dosage: 81 MG, QD
     Route: 048
     Dates: start: 20110414
  5. PREDNISONE [Suspect]
     Indication: RENAL TRANSPLANT
     Dosage: 37.5 MG, UNK
     Route: 048
     Dates: start: 20110415
  6. ADALAT [Suspect]
     Indication: HYPERTENSION
     Dosage: 30 MG, QD
     Route: 048
     Dates: start: 20110413
  7. SENOKOT [Suspect]
     Indication: CONSTIPATION
     Dosage: PRN
     Route: 048
     Dates: start: 20110414
  8. VALCYTE [Suspect]
     Dosage: UNK
     Dates: start: 20110414
  9. METOPROLOL SUCCINATE [Suspect]
     Indication: HYPERTENSION
     Dosage: 50 MG, BID
     Route: 048
     Dates: start: 20110414
  10. MAGNESIUM OXIDE [Suspect]
     Indication: HYPOMAGNESAEMIA
     Dosage: 800 MG, BID
     Route: 048
     Dates: start: 20110420
  11. BACTRIM DS [Suspect]
     Dosage: 1 TABLET QD
     Route: 048
     Dates: start: 20110411
  12. LANTUS [Suspect]
     Dosage: 25 UNK, QD
     Dates: start: 20110413
  13. PRILOSEC [Suspect]
     Indication: GASTROOESOPHAGEAL REFLUX DISEASE
     Dosage: 20 MG, QD
     Route: 048
     Dates: start: 20110413
  14. NOVOLOG [Suspect]
     Dosage: 4 UNITS FOLLOWING MEAL
     Dates: start: 20110413
  15. FLOMAX [Suspect]
     Indication: DYSURIA
     Dosage: 0.4 MG, UNK
     Dates: start: 20110414
  16. PHOSPHORUS [Suspect]
     Indication: HYPOPHOSPHATAEMIA
     Dosage: UNK
     Dates: start: 20110420

REACTIONS (2)
  - PANCREATITIS [None]
  - GASTROENTERITIS [None]
